FAERS Safety Report 13292070 (Version 1)
Quarter: 2017Q1

REPORT INFORMATION
  Report Type: Spontaneous
  Country: US (occurrence: US)
  Receive Date: 20170302
  Receipt Date: 20170302
  Transmission Date: 20170428
  Serious: Yes (Life-Threatening, Hospitalization)
  Sender: FDA-Public Use
  Company Number: None

PATIENT
  Age: 66 Year
  Sex: Male
  Weight: 63 kg

DRUGS (1)
  1. GLYBURIDE. [Suspect]
     Active Substance: GLYBURIDE
     Indication: DIABETES MELLITUS
     Route: 048
     Dates: start: 20160128, end: 20170126

REACTIONS (6)
  - Confusional state [None]
  - Sinus rhythm [None]
  - Blood creatine increased [None]
  - Hypoglycaemia [None]
  - Unresponsive to stimuli [None]
  - Atrial fibrillation [None]

NARRATIVE: CASE EVENT DATE: 20170122
